FAERS Safety Report 20068769 (Version 1)
Quarter: 2021Q4

REPORT INFORMATION
  Report Type: Spontaneous
  Country: US (occurrence: US)
  Receive Date: 20211115
  Receipt Date: 20211115
  Transmission Date: 20220303
  Serious: Yes (Hospitalization, Other)
  Sender: FDA-Public Use
  Company Number: US-PFIZER INC-202101489314

PATIENT
  Age: 30 Year
  Sex: Male

DRUGS (2)
  1. FENTANYL CITRATE [Suspect]
     Active Substance: FENTANYL CITRATE
     Dosage: UNK
     Route: 055
  2. HEROIN [Suspect]
     Active Substance: DIAMORPHINE
     Dosage: UNK
     Route: 055

REACTIONS (2)
  - Pneumomediastinum [Recovered/Resolved]
  - Drug abuse [Unknown]
